FAERS Safety Report 10498381 (Version 1)
Quarter: 2014Q4

REPORT INFORMATION
  Report Type: Spontaneous
  Country: US (occurrence: None)
  Receive Date: 20141003
  Receipt Date: 20141003
  Transmission Date: 20150528
  Serious: Yes (Death, Other)
  Sender: FDA-Public Use
  Company Number: None

PATIENT
  Age: 19 Year
  Sex: Male
  Weight: 99.79 kg

DRUGS (1)
  1. DINITROPHENOL [Suspect]
     Active Substance: 2,4-DINITROPHENOL

REACTIONS (1)
  - Death [None]

NARRATIVE: CASE EVENT DATE: 20140922
